FAERS Safety Report 7650354-8 (Version None)
Quarter: 2011Q3

REPORT INFORMATION
  Report Type: 
  Country: None (occurrence: None)
  Receive Date: 20110802
  Receipt Date: 20110720
  Transmission Date: 20111222
  Serious: Yes (Hospitalization, Other)
  Sender: FDA-Public Use
  Company Number: US-ASTRAZENECA-2007UW19771

PATIENT
  Age: 42 Year
  Sex: Male
  Weight: 99.3 kg

DRUGS (35)
  1. ABILIFY [Concomitant]
     Route: 048
  2. TRAZODONE HCL [Concomitant]
     Indication: SLEEP DISORDER
     Dates: start: 20040201
  3. ROBAXIN [Concomitant]
     Dates: start: 20060125
  4. SEROQUEL [Suspect]
     Dosage: 100-200 MG
     Route: 048
     Dates: start: 20040201
  5. WELLBUTRIN [Concomitant]
  6. GLIPIZIDE [Concomitant]
     Route: 048
     Dates: start: 20060809
  7. VIAGRA [Concomitant]
     Dosage: 25-50 MG
     Dates: start: 20060118
  8. SEROQUEL [Suspect]
     Indication: TACHYPHRENIA
     Route: 048
     Dates: start: 20040201, end: 20050801
  9. SEROQUEL [Suspect]
     Indication: BIPOLAR DISORDER
     Route: 048
     Dates: start: 20040201, end: 20050801
  10. ZYPREXA [Concomitant]
     Route: 048
     Dates: start: 19990101, end: 20010101
  11. PEG-INTRON [Concomitant]
     Dosage: 150 MCG, ONCE A WEEK
  12. NEURONTIN [Concomitant]
     Dosage: 300-1200 MG
     Route: 048
  13. ULTRAM [Concomitant]
     Indication: PAIN
  14. CITALOPRAM HYDROBROMIDE [Concomitant]
     Route: 048
  15. CELEXA [Concomitant]
  16. SEROQUEL [Suspect]
     Dosage: 100-200 MG
     Route: 048
     Dates: start: 20040201
  17. CHROMIUM CHLORIDE [Concomitant]
     Route: 048
  18. METHADONE HYDROCHLORIDE [Concomitant]
  19. DEPAKOTE [Concomitant]
  20. PAXIL [Concomitant]
     Indication: DEPRESSION
     Dates: start: 20040201
  21. BACLOFEN [Concomitant]
     Dosage: 10 MG, DISPENSED
  22. LANTUS [Concomitant]
     Dosage: 35-40 MG UNITS PER DAY
     Dates: start: 20060118
  23. CYMBALTA [Concomitant]
     Dosage: 30-60 MG
     Dates: start: 20060303
  24. BENADRYL [Concomitant]
  25. ESKALITH [Concomitant]
     Indication: AFFECTIVE DISORDER
     Dates: start: 20040201
  26. TRAZODONE HCL [Concomitant]
     Route: 048
  27. ALTACE [Concomitant]
     Route: 048
  28. GLYBURIDE [Concomitant]
     Dosage: 5 MG, DISPENSED
  29. LORAZEPAM [Concomitant]
     Dosage: 0.5 MG, DISPENSED
  30. HUMALOG [Concomitant]
     Dosage: STRENGTH-100 UNITS/ML
     Dates: start: 20060728
  31. AMBIEN [Concomitant]
     Route: 048
     Dates: start: 20060809
  32. METFORMIN HYDROCHLORIDE [Concomitant]
     Dosage: 500-1000 MG
     Route: 048
     Dates: start: 20060809
  33. VICODIN [Concomitant]
     Dosage: 500 MG EVERY 4-6 HOURLY AS NEEDED
     Route: 048
     Dates: start: 20060313
  34. TRILEPTAL [Concomitant]
  35. HYDROXYZINEPAN [Concomitant]

REACTIONS (8)
  - VISION BLURRED [None]
  - RETINOPATHY [None]
  - HYPOAESTHESIA [None]
  - NEUROPATHY PERIPHERAL [None]
  - TYPE 1 DIABETES MELLITUS [None]
  - TYPE 2 DIABETES MELLITUS [None]
  - SUICIDE ATTEMPT [None]
  - DIABETIC NEUROPATHY [None]
